FAERS Safety Report 7987403-3 (Version None)
Quarter: 2011Q4

REPORT INFORMATION
  Report Type: 
  Country: None (occurrence: None)
  Receive Date: 20111216
  Receipt Date: 20110405
  Transmission Date: 20120403
  Serious: No
  Sender: FDA-Public Use
  Company Number: US-BRISTOL-MYERS SQUIBB COMPANY-15654965

PATIENT
  Age: 38 Year
  Sex: Male

DRUGS (5)
  1. EFFEXOR [Concomitant]
  2. ABILIFY [Suspect]
     Indication: ANXIETY
     Dosage: YEARS AGO ABILIFY FOR ABOUT A YEAR
  3. LORAZEPAM [Concomitant]
  4. SIMVASTATIN [Concomitant]
  5. PAXIL CR [Concomitant]

REACTIONS (1)
  - NERVOUSNESS [None]
